FAERS Safety Report 24718247 (Version 1)
Quarter: 2024Q4

REPORT INFORMATION
  Report Type: Spontaneous
  Country: FR (occurrence: FR)
  Receive Date: 20241210
  Receipt Date: 20241210
  Transmission Date: 20250115
  Serious: Yes (Other)
  Sender: NOVARTIS
  Company Number: FR-002147023-NVSC2024FR233092

PATIENT
  Age: 45 Year
  Sex: Female

DRUGS (2)
  1. CYCLOSPORINE [Suspect]
     Active Substance: CYCLOSPORINE
     Indication: Immunosuppressant drug therapy
     Dosage: POD44 (WITH A TARGET SERUM TROUGH CONCENTRATION OF BETWEEN 150 AND 200NG/ML)
     Route: 065
     Dates: start: 2023, end: 2023
  2. HEPARIN [Concomitant]
     Active Substance: HEPARIN SODIUM
     Indication: Atrial septal defect
     Dosage: UNK
     Route: 065

REACTIONS (3)
  - Hepatitis acute [Unknown]
  - Cholestasis [Unknown]
  - Porto-sinusoidal vascular disorder [Unknown]

NARRATIVE: CASE EVENT DATE: 20230101
